FAERS Safety Report 11313972 (Version 1)
Quarter: 2015Q3

REPORT INFORMATION
  Report Type: Spontaneous
  Country: US (occurrence: US)
  Receive Date: 20150727
  Receipt Date: 20150727
  Transmission Date: 20151125
  Serious: No
  Sender: FDA-Public Use
  Company Number: US-ABBVIE-15P-163-1419524-00

PATIENT

DRUGS (1)
  1. SYNTHROID [Suspect]
     Active Substance: LEVOTHYROXINE SODIUM
     Indication: HYPOTHYROIDISM
     Route: 065

REACTIONS (4)
  - Ocular hyperaemia [Unknown]
  - Rash pruritic [Unknown]
  - Weight abnormal [Unknown]
  - Eye swelling [Unknown]

NARRATIVE: CASE EVENT DATE: 2015
